FAERS Safety Report 15409079 (Version 1)
Quarter: 2018Q3

REPORT INFORMATION
  Report Type: Spontaneous
  Country: GB (occurrence: GB)
  Receive Date: 20180920
  Receipt Date: 20180920
  Transmission Date: 20181010
  Serious: Yes (Death)
  Sender: FDA-Public Use
  Company Number: GB-ABBVIE-18K-167-2492480-00

PATIENT
  Sex: Female

DRUGS (1)
  1. VENETOCLAX. [Suspect]
     Active Substance: VENETOCLAX
     Indication: B-CELL PROLYMPHOCYTIC LEUKAEMIA
     Route: 048

REACTIONS (2)
  - Intentional product use issue [Unknown]
  - B-cell prolymphocytic leukaemia [Fatal]
